FAERS Safety Report 9359050 (Version 1)
Quarter: 2013Q2

REPORT INFORMATION
  Report Type: Spontaneous
  Country: US (occurrence: US)
  Receive Date: 20130620
  Receipt Date: 20130620
  Transmission Date: 20140414
  Serious: Yes (Death, Other)
  Sender: FDA-Public Use
  Company Number: US-BAXTER-2013BAX022344

PATIENT
  Age: 9 Month
  Sex: Male

DRUGS (2)
  1. VANCOMYCIN INJECTION, USP [Suspect]
     Indication: EVIDENCE BASED TREATMENT
     Route: 065
  2. ZOSYN [Suspect]
     Indication: EVIDENCE BASED TREATMENT
     Route: 065

REACTIONS (3)
  - Pneumonia necrotising [Fatal]
  - Acute respiratory distress syndrome [Not Recovered/Not Resolved]
  - Electrocardiogram T wave abnormal [Not Recovered/Not Resolved]
